FAERS Safety Report 22711089 (Version 3)
Quarter: 2024Q1

REPORT INFORMATION
  Report Type: Spontaneous
  Country: US (occurrence: US)
  Receive Date: 20230717
  Receipt Date: 20240227
  Transmission Date: 20240410
  Serious: Yes (Life-Threatening, Hospitalization, Other)
  Sender: FDA-Public Use
  Company Number: US-MACLEODS PHARMACEUTICALS US LTD-MAC2023042343

PATIENT

DRUGS (4)
  1. MEMANTINE [Suspect]
     Active Substance: MEMANTINE
     Indication: Dizziness
     Dosage: 5 MILLIGRAM, BID
     Route: 065
  2. MEMANTINE [Suspect]
     Active Substance: MEMANTINE
     Dosage: 60 DOSAGE FORM, SINGLE
     Route: 065
  3. METOPROLOL SUCCINATE [Concomitant]
     Active Substance: METOPROLOL SUCCINATE
     Indication: Product used for unknown indication
     Dosage: 50 MILLIGRAM, QD
     Route: 065
  4. MECLIZINE [Concomitant]
     Active Substance: MECLIZINE HYDROCHLORIDE
     Indication: Dizziness
     Dosage: 12.5 MILLIGRAM, PRN (EVERY 8 H)
     Route: 065

REACTIONS (11)
  - Echolalia [Recovered/Resolved]
  - Catatonia [Recovered/Resolved]
  - Mental status changes [Recovering/Resolving]
  - Ventricular extrasystoles [Recovered/Resolved]
  - Hypertensive crisis [Recovered/Resolved]
  - Hallucination, auditory [Recovered/Resolved]
  - Agitation [Recovered/Resolved]
  - Hypertension [Recovered/Resolved]
  - Overdose [Recovered/Resolved]
  - Intentional product misuse [Recovered/Resolved]
  - Wrong technique in product usage process [Recovered/Resolved]
